FAERS Safety Report 16744499 (Version 1)
Quarter: 2019Q3

REPORT INFORMATION
  Report Type: Spontaneous
  Country: US (occurrence: US)
  Receive Date: 20190827
  Receipt Date: 20190827
  Transmission Date: 20191005
  Serious: Yes (Other)
  Sender: FDA-Public Use
  Company Number: US-PFIZER INC-2019164094

PATIENT
  Age: 34 Year
  Sex: Female
  Weight: 65.76 kg

DRUGS (5)
  1. LYRICA [Suspect]
     Active Substance: PREGABALIN
     Dosage: 150 MG, 4X/DAY
     Route: 048
     Dates: start: 20190206
  2. LASIX [Concomitant]
     Active Substance: FUROSEMIDE
     Indication: PERIPHERAL SWELLING
     Dosage: 15 MG, 2X/DAY
     Route: 048
     Dates: start: 2017, end: 2018
  3. POTASSIUM [Concomitant]
     Active Substance: POTASSIUM
     Dosage: UNK UNK, 2X/DAY
     Route: 048
     Dates: start: 2017, end: 2018
  4. LYRICA [Suspect]
     Active Substance: PREGABALIN
     Indication: FIBROMYALGIA
     Dosage: 150 MG, 4X/DAY
     Route: 048
  5. LASIX [Concomitant]
     Active Substance: FUROSEMIDE
     Dosage: 30 MG, 2X/DAY
     Route: 048
     Dates: start: 2017, end: 2018

REACTIONS (8)
  - Fall [Unknown]
  - Fractured coccyx [Not Recovered/Not Resolved]
  - Muscular weakness [Not Recovered/Not Resolved]
  - Tremor [Not Recovered/Not Resolved]
  - Muscle spasms [Not Recovered/Not Resolved]
  - Off label use [Unknown]
  - Clonic convulsion [Unknown]
  - Condition aggravated [Unknown]

NARRATIVE: CASE EVENT DATE: 2011
